FAERS Safety Report 4655937-5 (Version None)
Quarter: 2005Q2

REPORT INFORMATION
  Report Type: 
  Country: None (occurrence: None)
  Receive Date: 20050505
  Receipt Date: 20050428
  Transmission Date: 20051028
  Serious: Yes (Life-Threatening, Hospitalization, Other)
  Sender: FDA-Public Use
  Company Number: 2004113279

PATIENT
  Age: 14 Year
  Sex: Female

DRUGS (9)
  1. VFEND [Suspect]
     Indication: ANTIFUNGAL PROPHYLAXIS
     Dosage: 400 MG (200 MG, 2 IN 1 D), ORAL
     Route: 048
     Dates: start: 20040913, end: 20041117
  2. CYCLOSPORINE [Concomitant]
  3. PREDNISONE [Concomitant]
  4. RANITIDINE [Concomitant]
  5. MORPHINE SULFATE [Concomitant]
  6. BENZALKONIUM CHLORIDE (BENZALKONIUM CHLORIDE) [Concomitant]
  7. NORETHISTERONE (NORETHISTERONE) [Concomitant]
  8. CASPOFUNGIN (CASPOFUNGIN) [Concomitant]
  9. ACYCLOVIR [Concomitant]

REACTIONS (4)
  - ASEPTIC NECROSIS BONE [None]
  - GENERAL PHYSICAL HEALTH DETERIORATION [None]
  - PAIN IN EXTREMITY [None]
  - PANCREATITIS ACUTE [None]
